FAERS Safety Report 4673499-3 (Version None)
Quarter: 2005Q2

REPORT INFORMATION
  Report Type: 
  Country: None (occurrence: None)
  Receive Date: 20050525
  Receipt Date: 20050512
  Transmission Date: 20051028
  Serious: Yes (Hospitalization)
  Sender: FDA-Public Use
  Company Number: PHBS2005JP06867

PATIENT
  Age: 62 Year
  Sex: Female
  Weight: 52 kg

DRUGS (3)
  1. VOLTAREN [Suspect]
     Indication: ARTHRALGIA
     Dosage: 75 MG/DAY
     Route: 048
     Dates: start: 20050428
  2. TERNELIN [Suspect]
     Indication: ARTHRALGIA
     Dosage: 2 MG/DAY
     Route: 048
     Dates: start: 20050428
  3. MUCOSTA [Suspect]
     Indication: ARTHRALGIA
     Dosage: 2 DF/DAY
     Route: 048
     Dates: start: 20050428

REACTIONS (5)
  - ANAPHYLACTIC SHOCK [None]
  - BLOOD PRESSURE DECREASED [None]
  - CONFUSIONAL STATE [None]
  - ERYTHEMA [None]
  - VOMITING [None]
